FAERS Safety Report 25765841 (Version 1)
Quarter: 2025Q3

REPORT INFORMATION
  Report Type: Spontaneous
  Country: US (occurrence: US)
  Receive Date: 20250905
  Receipt Date: 20250905
  Transmission Date: 20251020
  Serious: No
  Sender: DOMPE FARMACEUTICI
  Company Number: US-FARMAPROD-202407-2581

PATIENT
  Age: 68 Year
  Sex: Male

DRUGS (4)
  1. OXERVATE [Suspect]
     Active Substance: CENEGERMIN-BKBJ
     Indication: Neurotrophic keratopathy
     Route: 047
     Dates: start: 20240705
  2. ASPIRIN [Concomitant]
     Active Substance: ASPIRIN
  3. FEBUXOSTAT [Concomitant]
     Active Substance: FEBUXOSTAT
  4. TELMISARTAN [Concomitant]
     Active Substance: TELMISARTAN

REACTIONS (3)
  - Eye pain [Unknown]
  - Eye irritation [Unknown]
  - Vision blurred [Unknown]

NARRATIVE: CASE EVENT DATE: 20240706
